FAERS Safety Report 4635668-8 (Version None)
Quarter: 2005Q2

REPORT INFORMATION
  Report Type: 
  Country: None (occurrence: None)
  Receive Date: 20050413
  Receipt Date: 20050405
  Transmission Date: 20051028
  Serious: Yes (Hospitalization)
  Sender: FDA-Public Use
  Company Number: 2005032992

PATIENT
  Age: 64 Year
  Sex: Male

DRUGS (4)
  1. LIPITOR [Suspect]
     Indication: BLOOD CHOLESTEROL INCREASED
     Dosage: 10 MG (10 MG, 1 IN 1 D)
  2. COUMADIN [Concomitant]
  3. SOTALOL HCL [Concomitant]
  4. LANOXIN [Concomitant]

REACTIONS (1)
  - GLOBAL AMNESIA [None]
